FAERS Safety Report 17576502 (Version 3)
Quarter: 2020Q2

REPORT INFORMATION
  Report Type: Spontaneous
  Country: US (occurrence: US)
  Receive Date: 20200324
  Receipt Date: 20200406
  Transmission Date: 20200713
  Serious: Yes (Hospitalization, Other)
  Sender: FDA-Public Use
  Company Number: US-CELGENEUS-USA-20200306572

PATIENT
  Age: 83 Year
  Sex: Female

DRUGS (2)
  1. IDHIFA [Suspect]
     Active Substance: ENASIDENIB MESYLATE
     Indication: MYELODYSPLASTIC SYNDROME
     Dosage: 100 MILLIGRAM
     Route: 048
     Dates: start: 20200311
  2. IDHIFA [Suspect]
     Active Substance: ENASIDENIB MESYLATE
     Indication: OFF LABEL USE

REACTIONS (8)
  - Haemoglobin decreased [Unknown]
  - Renal disorder [Unknown]
  - Palpitations [Recovering/Resolving]
  - Confusional state [Unknown]
  - Nausea [Unknown]
  - Fatigue [Recovered/Resolved]
  - Oedema [Unknown]
  - Heart rate irregular [Recovering/Resolving]

NARRATIVE: CASE EVENT DATE: 202003
